FAERS Safety Report 5941652-4 (Version None)
Quarter: 2008Q4

REPORT INFORMATION
  Report Type: 
  Country: None (occurrence: None)
  Receive Date: 20081031
  Receipt Date: 20081020
  Transmission Date: 20090506
  Serious: Yes (Hospitalization)
  Sender: FDA-Public Use
  Company Number: CLOF-1000293

PATIENT
  Age: 72 Year
  Sex: Female
  Weight: 48 kg

DRUGS (4)
  1. CLOFARABINE (CLOFARABINE) TABLET [Suspect]
     Indication: ACUTE LEUKAEMIA
     Dosage: QD
     Dates: start: 20080908, end: 20080921
  2. PERCOCET (OXYCODONE TEREPHTHALATE, PARACETAMOL) [Concomitant]
  3. ZOSYN (PIPERRACILLIN SODIUM, TAZOBACTAM SODIUM) [Concomitant]
  4. TOBRAMYCIN [Concomitant]

REACTIONS (16)
  - ACINETOBACTER INFECTION [None]
  - BLOOD CREATINE INCREASED [None]
  - BLOOD PRESSURE INCREASED [None]
  - BLOOD SODIUM DECREASED [None]
  - BLOOD UREA INCREASED [None]
  - FEBRILE NEUTROPENIA [None]
  - GASTRIC ULCER [None]
  - HEART RATE INCREASED [None]
  - HYPOKALAEMIA [None]
  - OESOPHAGEAL ULCER [None]
  - PERICARDIAL EFFUSION [None]
  - PLEURAL EFFUSION [None]
  - RENAL VESSEL DISORDER [None]
  - SPLENIC CYST [None]
  - SPLENOMEGALY [None]
  - VASCULAR CALCIFICATION [None]
